FAERS Safety Report 5531232-7 (Version None)
Quarter: 2007Q4

REPORT INFORMATION
  Report Type: 
  Country: None (occurrence: None)
  Receive Date: 20071130
  Receipt Date: 20071126
  Transmission Date: 20080405
  Serious: Yes (Hospitalization)
  Sender: FDA-Public Use
  Company Number: DE-BRISTOL-MYERS SQUIBB COMPANY-13911946

PATIENT
  Age: 74 Year
  Sex: Male

DRUGS (9)
  1. CETUXIMAB [Suspect]
     Indication: NON-SMALL CELL LUNG CANCER
     Route: 042
     Dates: start: 20070508, end: 20070925
  2. CARBOPLATIN [Suspect]
     Indication: NON-SMALL CELL LUNG CANCER
     Dosage: AUC 5
     Route: 042
     Dates: start: 20070508, end: 20070925
  3. DOCETAXEL [Suspect]
     Indication: NON-SMALL CELL LUNG CANCER
     Route: 042
     Dates: start: 20070508, end: 20070925
  4. MOVICOL [Concomitant]
  5. TAVOR [Concomitant]
  6. NEXIUM [Concomitant]
  7. TOREM [Concomitant]
  8. PERENTEROL [Concomitant]
  9. QUERTO [Concomitant]

REACTIONS (3)
  - EPISTAXIS [None]
  - HAEMATOCHEZIA [None]
  - HAEMORRHAGIC DIATHESIS [None]
